FAERS Safety Report 23257969 (Version 1)
Quarter: 2023Q4

REPORT INFORMATION
  Report Type: Spontaneous
  Country: CN (occurrence: CN)
  Receive Date: 20231204
  Receipt Date: 20231204
  Transmission Date: 20240110
  Serious: Yes (Hospitalization)
  Sender: FDA-Public Use
  Company Number: CN-MYLANLABS-2023M1128259

PATIENT
  Age: 43 Year
  Sex: Female

DRUGS (9)
  1. ALPRAZOLAM [Suspect]
     Active Substance: ALPRAZOLAM
     Indication: Bipolar disorder
     Dosage: 0.4 MILLIGRAM, HS (PER NIGHT)
     Route: 065
  2. QUETIAPINE [Suspect]
     Active Substance: QUETIAPINE
     Indication: Bipolar disorder
     Dosage: 400 MILLIGRAM, HS (PER NIGHT)
     Route: 065
  3. QUETIAPINE [Suspect]
     Active Substance: QUETIAPINE
     Dosage: UNK, HS (PER NIGHT; GRADUALLY TITRATED UP)
     Route: 065
  4. METHYLPREDNISOLONE [Concomitant]
     Active Substance: METHYLPREDNISOLONE
     Indication: Behcet^s syndrome
     Dosage: UNK (OFTEN DISCONTINUED)
     Route: 065
     Dates: start: 2020
  5. METHYLPREDNISOLONE [Concomitant]
     Active Substance: METHYLPREDNISOLONE
     Dosage: UNK (DISCHARGED WITH METHYLPREDNISOLONE)
     Route: 065
  6. CYCLOSPORINE [Concomitant]
     Active Substance: CYCLOSPORINE
     Indication: Behcet^s syndrome
     Dosage: UNK (OFTEN DISCONTINUED FOLLOWED BY COMPLETE DISCONTINUATION)
     Route: 065
     Dates: start: 2020
  7. CYCLOSPORINE [Concomitant]
     Active Substance: CYCLOSPORINE
     Dosage: UNK (RE-INITIATION)
     Route: 065
     Dates: start: 2020
  8. TOFACITINIB [Concomitant]
     Active Substance: TOFACITINIB
     Indication: Autoimmune disorder
     Dosage: UNK
     Route: 065
  9. VENLAFAXINE [Concomitant]
     Active Substance: VENLAFAXINE HYDROCHLORIDE
     Indication: Depression
     Dosage: UNK
     Route: 065

REACTIONS (1)
  - Drug ineffective [Unknown]
